FAERS Safety Report 5503520-1 (Version None)
Quarter: 2007Q4

REPORT INFORMATION
  Report Type: 
  Country: None (occurrence: None)
  Receive Date: 20071029
  Receipt Date: 20071016
  Transmission Date: 20080405
  Serious: Yes (Hospitalization)
  Sender: FDA-Public Use
  Company Number: 2007BI021919

PATIENT
  Age: 55 Year
  Sex: Female
  Weight: 58.514 kg

DRUGS (5)
  1. AVONEX [Suspect]
     Indication: MULTIPLE SCLEROSIS
     Dosage: 30 UG; QW; IM
     Route: 030
  2. AVONEX [Suspect]
     Indication: MULTIPLE SCLEROSIS
     Dosage: 30 UG; QW; IM
     Route: 030
  3. EFFEXOR [Concomitant]
  4. FOSAMAX [Concomitant]
  5. ALEVE [Concomitant]

REACTIONS (7)
  - BONE PAIN [None]
  - BRAIN NEOPLASM BENIGN [None]
  - FALL [None]
  - HAEMORRHOIDS [None]
  - MOVEMENT DISORDER [None]
  - OSTEOPOROSIS [None]
  - WRIST FRACTURE [None]
